FAERS Safety Report 23433270 (Version 1)
Quarter: 2024Q1

REPORT INFORMATION
  Report Type: Report from Study
  Country: CA (occurrence: CA)
  Receive Date: 20240123
  Receipt Date: 20240123
  Transmission Date: 20240409
  Serious: Yes (Other)
  Sender: FDA-Public Use
  Company Number: None

PATIENT

DRUGS (1)
  1. MEPOLIZUMAB [Suspect]
     Active Substance: MEPOLIZUMAB
     Indication: Asthma
     Dosage: 100 MG, Q4W
     Route: 058
     Dates: start: 20181114

REACTIONS (4)
  - Diabetes mellitus [Unknown]
  - Loss of consciousness [Recovered/Resolved]
  - Choking [Unknown]
  - Vomiting [Unknown]

NARRATIVE: CASE EVENT DATE: 20240115
